FAERS Safety Report 10310232 (Version 1)
Quarter: 2014Q3

REPORT INFORMATION
  Report Type: Spontaneous
  Country: UA (occurrence: None)
  Receive Date: 20140715
  Receipt Date: 20140715
  Transmission Date: 20150326
  Serious: Yes (Other)
  Sender: FDA-Public Use
  Company Number: 7306334

PATIENT
  Age: 47 Year
  Sex: Female

DRUGS (1)
  1. EUTHYROX (LEVOTHYROXINE SODIUM) (FILM-COATED TABLET) (LEVOTHYROXINE SODIUM), 156953 [Suspect]
     Active Substance: LEVOTHYROXINE SODIUM
     Indication: PRODUCT USED FOR UNKNOWN INDICATION
     Route: 048
     Dates: start: 20140306, end: 20140306

REACTIONS (2)
  - Blood thyroid stimulating hormone increased [None]
  - Drug ineffective [None]

NARRATIVE: CASE EVENT DATE: 20140506
